FAERS Safety Report 23059009 (Version 1)
Quarter: 2023Q4

REPORT INFORMATION
  Report Type: Spontaneous
  Country: US (occurrence: None)
  Receive Date: 20231012
  Receipt Date: 20231012
  Transmission Date: 20240110
  Serious: Yes (Other)
  Sender: FDA-Public Use
  Company Number: None

PATIENT
  Age: 29 Year
  Sex: Female
  Weight: 99 kg

DRUGS (1)
  1. BUPRENORPHINE\NALOXONE [Suspect]
     Active Substance: BUPRENORPHINE\NALOXONE
     Indication: Drug dependence
     Dosage: OTHER QUANTITY : 300 TABLET(S);?FREQUENCY : TWICE A DAY;?
     Route: 060

REACTIONS (30)
  - Dyspnoea [None]
  - Anxiety [None]
  - Headache [None]
  - Hepatic pain [None]
  - Oedema [None]
  - Eye swelling [None]
  - Palpitations [None]
  - Diplopia [None]
  - Hypertension [None]
  - Hypotension [None]
  - Restlessness [None]
  - Hyperhidrosis [None]
  - Chills [None]
  - Erythema [None]
  - Back pain [None]
  - Arthralgia [None]
  - Nail pitting [None]
  - Burning sensation [None]
  - Thrombosis [None]
  - Decreased appetite [None]
  - Weight decreased [None]
  - Hypoaesthesia [None]
  - Hypoaesthesia [None]
  - Haematochezia [None]
  - Oral mucosal blistering [None]
  - Chest pain [None]
  - Atrial fibrillation [None]
  - Dizziness [None]
  - Dyskinesia [None]
  - Chills [None]

NARRATIVE: CASE EVENT DATE: 20220930
